FAERS Safety Report 6901613-5 (Version None)
Quarter: 2010Q3

REPORT INFORMATION
  Report Type: 
  Country: None (occurrence: None)
  Receive Date: 20100803
  Receipt Date: 20080228
  Transmission Date: 20110219
  Serious: No
  Sender: FDA-Public Use
  Company Number: US-PFIZER INC-2008019976

PATIENT
  Sex: Male

DRUGS (7)
  1. LYRICA [Suspect]
     Indication: PAIN
     Dates: start: 20080226
  2. METHADONE HCL [Suspect]
  3. MS CONTIN [Concomitant]
  4. XANAX [Concomitant]
  5. FENOFIBRATE [Concomitant]
  6. PROTONIX [Concomitant]
  7. CLARINEX [Concomitant]

REACTIONS (4)
  - ACNE [None]
  - INCREASED APPETITE [None]
  - WEIGHT INCREASED [None]
  - WITHDRAWAL SYNDROME [None]
